FAERS Safety Report 7385793-6 (Version None)
Quarter: 2011Q1

REPORT INFORMATION
  Report Type: 
  Country: None (occurrence: None)
  Receive Date: 20110331
  Receipt Date: 20110325
  Transmission Date: 20110831
  Serious: Yes (Hospitalization, Other)
  Sender: FDA-Public Use
  Company Number: US-AMGEN-USASP2011013041

PATIENT
  Age: 64 Year
  Sex: Female
  Weight: 71.02 kg

DRUGS (15)
  1. SYNTHROID [Concomitant]
     Dosage: 200 A?G, QD
  2. NEULASTA [Suspect]
     Indication: NEUTROPENIA
     Dosage: 6 MG, UNK
     Route: 058
     Dates: start: 20110223, end: 20110223
  3. ALIMTA [Concomitant]
  4. HYDROMORPHONE HCL [Concomitant]
     Dosage: 2 MG, Q6H
  5. FENTANYL [Concomitant]
     Dosage: 50 A?G, 2 TIMES/WK
  6. TRAZODONE [Concomitant]
     Dosage: 150 MG, QD
  7. PHENERGAN HCL [Concomitant]
  8. ATIVAN [Concomitant]
  9. HYDROCORTISONE [Concomitant]
  10. FLONASE [Concomitant]
  11. CARBOPLATIN [Concomitant]
  12. AVASTIN [Concomitant]
  13. EFFEXOR [Concomitant]
  14. COMPAZINE [Concomitant]
     Dosage: 10 MG, Q6H
  15. LORTAB [Concomitant]
     Dosage: 7.5 UNK, UNK

REACTIONS (14)
  - MALAISE [None]
  - ANAPHYLACTIC REACTION [None]
  - CHEST PAIN [None]
  - NIGHT SWEATS [None]
  - NAUSEA [None]
  - DYSPNOEA [None]
  - DIZZINESS [None]
  - ATELECTASIS [None]
  - INJECTION SITE ERYTHEMA [None]
  - LUNG INFILTRATION [None]
  - OROPHARYNGEAL SWELLING [None]
  - COUGH [None]
  - CONFUSIONAL STATE [None]
  - RASH ERYTHEMATOUS [None]
